FAERS Safety Report 19853740 (Version 1)
Quarter: 2021Q3

REPORT INFORMATION
  Report Type: Spontaneous
  Country: FR (occurrence: FR)
  Receive Date: 20210919
  Receipt Date: 20210919
  Transmission Date: 20211014
  Serious: Yes (Other)
  Sender: FDA-Public Use
  Company Number: FR-ABBVIE-21K-056-4081577-00

PATIENT
  Age: 79 Year
  Sex: Male

DRUGS (3)
  1. DEPAKINE [Suspect]
     Active Substance: VALPROATE SODIUM
     Indication: BEHAVIOUR DISORDER
     Route: 048
     Dates: start: 20180326, end: 2018
  2. DEPAKINE [Suspect]
     Active Substance: VALPROATE SODIUM
     Dosage: DOSE REDUCED
     Route: 048
     Dates: start: 20180420
  3. TERCIAN [Concomitant]
     Active Substance: CYAMEMAZINE
     Indication: BEHAVIOUR DISORDER
     Dates: start: 20180409

REACTIONS (2)
  - Cholestasis [Recovered/Resolved]
  - Hepatic cytolysis [Recovered/Resolved]

NARRATIVE: CASE EVENT DATE: 20180420
